FAERS Safety Report 16837063 (Version 1)
Quarter: 2019Q3

REPORT INFORMATION
  Report Type: Spontaneous
  Country: US (occurrence: US)
  Receive Date: 20190923
  Receipt Date: 20190923
  Transmission Date: 20191005
  Serious: No
  Sender: FDA-Public Use
  Company Number: US-NOVEN PHARMACEUTICALS, INC.-US2018000698

PATIENT

DRUGS (2)
  1. PANTOPRAZOLE [Concomitant]
     Active Substance: PANTOPRAZOLE
     Indication: DYSPEPSIA
     Dosage: 40 MG, UNKNOWN
     Route: 048
  2. COMBIPATCH [Suspect]
     Active Substance: ESTRADIOL\NORETHINDRONE ACETATE
     Indication: CONTRACEPTION
     Dosage: 50/140 MG, UNKNOWN
     Route: 062
     Dates: start: 201808, end: 201812

REACTIONS (9)
  - Off label use [Recovered/Resolved]
  - Application site pain [Not Recovered/Not Resolved]
  - Application site burn [Not Recovered/Not Resolved]
  - Application site pruritus [Recovered/Resolved]
  - Product administered at inappropriate site [Recovered/Resolved]
  - Application site erythema [Not Recovered/Not Resolved]
  - Application site irritation [Recovering/Resolving]
  - Product dose omission [Not Recovered/Not Resolved]
  - Application site inflammation [Unknown]

NARRATIVE: CASE EVENT DATE: 2018
